FAERS Safety Report 8232165-8 (Version None)
Quarter: 2012Q1

REPORT INFORMATION
  Report Type: 
  Country: None (occurrence: None)
  Receive Date: 20120323
  Receipt Date: 20120314
  Transmission Date: 20120608
  Serious: No
  Sender: FDA-Public Use
  Company Number: US-B.I. PHARMACEUTICALS,INC./RIDGEFIELD-2012-BP-04947BP

PATIENT
  Sex: Female

DRUGS (5)
  1. ADVAIR DISKUS 100/50 [Suspect]
     Indication: CHRONIC OBSTRUCTIVE PULMONARY DISEASE
     Route: 055
     Dates: start: 20120101
  2. ASCORBIC ACID [Concomitant]
     Indication: PROPHYLAXIS
     Route: 048
  3. CETIRIZINE [Concomitant]
     Indication: HYPERSENSITIVITY
     Route: 048
  4. SPIRIVA [Suspect]
     Indication: CHRONIC OBSTRUCTIVE PULMONARY DISEASE
     Dosage: 18 MCG
     Route: 055
     Dates: start: 20090101
  5. OXYGEN [Concomitant]
     Indication: DYSPNOEA
     Route: 045

REACTIONS (2)
  - CONSTIPATION [None]
  - TONGUE DISORDER [None]
